FAERS Safety Report 6135311-5 (Version None)
Quarter: 2009Q1

REPORT INFORMATION
  Report Type: 
  Country: None (occurrence: None)
  Receive Date: 20090327
  Receipt Date: 20090317
  Transmission Date: 20090719
  Serious: Yes (Other)
  Sender: FDA-Public Use
  Company Number: DE-AVENTIS-200812256DE

PATIENT
  Sex: Female

DRUGS (1)
  1. DERMATOP SALBE [Suspect]
     Indication: NEURODERMATITIS
     Dosage: DOSE: NOT REPORTED
     Route: 063
     Dates: start: 20080801, end: 20080801

REACTIONS (4)
  - DEVELOPMENTAL DELAY [None]
  - DRUG EXPOSURE VIA BREAST MILK [None]
  - ECZEMA [None]
  - SEBORRHOEIC DERMATITIS [None]
